FAERS Safety Report 9368710 (Version 1)
Quarter: 2013Q2

REPORT INFORMATION
  Report Type: Spontaneous
  Country: CN (occurrence: CN)
  Receive Date: 20130626
  Receipt Date: 20130626
  Transmission Date: 20140414
  Serious: Yes (Other)
  Sender: FDA-Public Use
  Company Number: CN-ASTRAZENECA-2012SE70460

PATIENT
  Age: 82 Year
  Sex: Female

DRUGS (5)
  1. PLENDIL [Suspect]
     Indication: HYPERTENSION
     Route: 048
     Dates: start: 2005, end: 2006
  2. PLENDIL [Suspect]
     Indication: HYPERTENSION
     Route: 048
     Dates: start: 2006
  3. PLENDIL [Suspect]
     Indication: HYPERTENSION
     Route: 048
  4. ISOSORBIDE MONONITRATE [Concomitant]
     Indication: HYPERTENSION
     Route: 048
     Dates: start: 2005, end: 20120904
  5. NAOXINTONG JIAONANG [Concomitant]
     Indication: HYPERTENSION
     Route: 048
     Dates: start: 2005

REACTIONS (4)
  - Fall [Unknown]
  - Syncope [Recovering/Resolving]
  - Blood pressure fluctuation [Recovering/Resolving]
  - Dizziness [Recovered/Resolved]
